FAERS Safety Report 10656839 (Version 1)
Quarter: 2014Q4

REPORT INFORMATION
  Report Type: Spontaneous
  Country: US (occurrence: US)
  Receive Date: 20141217
  Receipt Date: 20141217
  Transmission Date: 20150529
  Serious: Yes (Other)
  Sender: FDA-Public Use
  Company Number: US-PFIZER INC-2014343113

PATIENT
  Age: 43 Year
  Sex: Female
  Weight: 102 kg

DRUGS (2)
  1. IBUPROFEN. [Suspect]
     Active Substance: IBUPROFEN
     Dosage: 15 DF, DAILY (15 IBUPROFEN IN A DAY)
     Dates: start: 1995
  2. IBUPROFEN. [Suspect]
     Active Substance: IBUPROFEN
     Dosage: 15 DF, DAILY (15 IBUPROFEN IN A DAY)
     Dates: end: 201411

REACTIONS (2)
  - Overdose [Unknown]
  - Renal impairment [Unknown]

NARRATIVE: CASE EVENT DATE: 1995
